FAERS Safety Report 20654477 (Version 2)
Quarter: 2022Q2

REPORT INFORMATION
  Report Type: Spontaneous
  Country: US (occurrence: US)
  Receive Date: 20220330
  Receipt Date: 20220414
  Transmission Date: 20220720
  Serious: No
  Sender: FDA-Public Use
  Company Number: US-BAYER-2022A041524

PATIENT
  Age: 57 Year
  Sex: Male

DRUGS (1)
  1. JIVI [Suspect]
     Active Substance: DAMOCTOCOG ALFA PEGOL
     Dosage: 4000 IU
     Route: 042

REACTIONS (1)
  - Joint injury [Recovered/Resolved]

NARRATIVE: CASE EVENT DATE: 20220228
